FAERS Safety Report 8206834-X (Version None)
Quarter: 2012Q1

REPORT INFORMATION
  Report Type: 
  Country: None (occurrence: None)
  Receive Date: 20120312
  Receipt Date: 20120224
  Transmission Date: 20120608
  Serious: No
  Sender: FDA-Public Use
  Company Number: MSER20120013

PATIENT
  Age: 56 Year
  Sex: Male

DRUGS (2)
  1. OPANA ER [Suspect]
     Indication: PAIN
     Dosage: 160 MG, 4 IN 1 D, ORAL
     Route: 048
     Dates: end: 20120222
  2. MORPHINE SULFATE [Suspect]
     Indication: PAIN
     Dosage: 200 MG, 2 IN 1 D, ORAL
     Route: 048
     Dates: start: 20120222

REACTIONS (4)
  - MALAISE [None]
  - MUSCULAR WEAKNESS [None]
  - NAUSEA [None]
  - INADEQUATE ANALGESIA [None]
